FAERS Safety Report 5290646-3 (Version None)
Quarter: 2007Q2

REPORT INFORMATION
  Report Type: 
  Country: None (occurrence: None)
  Receive Date: 20070409
  Receipt Date: 20070327
  Transmission Date: 20071010
  Serious: Yes (Disabling)
  Sender: FDA-Public Use
  Company Number: FR-GLAXOSMITHKLINE-B0426814A

PATIENT
  Age: 75 Year
  Sex: Male
  Weight: 70 kg

DRUGS (11)
  1. AVANDAMET [Suspect]
     Route: 048
     Dates: end: 20060322
  2. PHYSIOTENS [Concomitant]
     Dosage: .4MG PER DAY
     Route: 048
     Dates: start: 20050101
  3. TENORDATE [Concomitant]
     Route: 065
  4. AMARYL [Concomitant]
     Dosage: 4MG PER DAY
     Route: 048
     Dates: start: 20030101, end: 20060101
  5. IRBESARTAN [Concomitant]
     Dosage: 500MG PER DAY
     Route: 048
     Dates: start: 20040101
  6. ESIDRIX [Concomitant]
     Dosage: 25MG PER DAY
     Route: 048
     Dates: start: 20020101
  7. LASILIX 40 MG [Concomitant]
     Route: 065
  8. KARDEGIC [Concomitant]
     Indication: HYPERTENSIVE HEART DISEASE
     Dosage: 300MG PER DAY
     Route: 048
     Dates: start: 20030101
  9. TAHOR [Concomitant]
     Dosage: 40MG PER DAY
     Route: 048
     Dates: start: 20030101
  10. FUROSEMIDE INTENSOL [Concomitant]
     Dosage: 20MG PER DAY
     Route: 048
     Dates: start: 20020101
  11. MEDICATION FOR HIGH BLOOD PRESSURE [Concomitant]
     Dosage: 1UNIT PER DAY
     Route: 065
     Dates: start: 20020101

REACTIONS (5)
  - ASTHENIA [None]
  - COUGH [None]
  - OEDEMA [None]
  - PAINFUL RESPIRATION [None]
  - PLEURISY [None]
